FAERS Safety Report 17514887 (Version 1)
Quarter: 2020Q1

REPORT INFORMATION
  Report Type: Spontaneous
  Country: CZ (occurrence: CZ)
  Receive Date: 20200309
  Receipt Date: 20200309
  Transmission Date: 20200409
  Serious: Yes (Death, Life-Threatening, Hospitalization, Other)
  Sender: FDA-Public Use
  Company Number: CZ-ALVOGEN-2020-ALVOGEN-107763

PATIENT
  Age: 45 Year
  Sex: Male

DRUGS (9)
  1. CYTARABINE. [Suspect]
     Active Substance: CYTARABINE
     Indication: ACUTE MYELOID LEUKAEMIA
  2. FLUCONAZOLE. [Concomitant]
     Active Substance: FLUCONAZOLE
     Indication: ANTIFUNGAL PROPHYLAXIS
  3. VANCOMYCIN [Concomitant]
     Active Substance: VANCOMYCIN
     Indication: ANTIBIOTIC PROPHYLAXIS
  4. CIPROFLOXACIN. [Concomitant]
     Active Substance: CIPROFLOXACIN
     Indication: ANTIBIOTIC PROPHYLAXIS
     Route: 065
  5. AMPHOTERICIN B DEOXYCHOLATE [Suspect]
     Active Substance: AMPHOTERICIN B
     Indication: ANTIFUNGAL TREATMENT
     Dosage: 75 MILLIGRAM MG QD IV;
     Route: 042
  6. ACICLOVIR [Concomitant]
     Active Substance: ACYCLOVIR
     Indication: ANTIVIRAL PROPHYLAXIS
     Route: 065
  7. VORICONAZOLE. [Suspect]
     Active Substance: VORICONAZOLE
     Indication: ANTIFUNGAL TREATMENT
     Dosage: 200 MG BID PO
     Route: 048
  8. MEROPENEM. [Concomitant]
     Active Substance: MEROPENEM
     Indication: ANTIBIOTIC PROPHYLAXIS
     Route: 065
  9. TEICOPLANIN [Concomitant]
     Active Substance: TEICOPLANIN
     Indication: ANTIBIOTIC PROPHYLAXIS

REACTIONS (3)
  - Septic shock [Fatal]
  - Multiple organ dysfunction syndrome [Fatal]
  - Drug ineffective [Fatal]
